FAERS Safety Report 9682789 (Version 1)
Quarter: 2013Q4

REPORT INFORMATION
  Report Type: Spontaneous
  Country: TH (occurrence: TH)
  Receive Date: 20131112
  Receipt Date: 20131112
  Transmission Date: 20140711
  Serious: Yes (Other)
  Sender: FDA-Public Use
  Company Number: PHHY2013TH126007

PATIENT
  Age: 52 Year
  Sex: Female

DRUGS (1)
  1. IMATINIB [Suspect]
     Indication: CHRONIC MYELOID LEUKAEMIA
     Dosage: 100 MG PER DAY
     Route: 048
     Dates: start: 200912

REACTIONS (13)
  - Drug reaction with eosinophilia and systemic symptoms [Unknown]
  - Rash generalised [Recovering/Resolving]
  - Eye swelling [Recovering/Resolving]
  - Dry skin [Recovering/Resolving]
  - Pruritus [Recovering/Resolving]
  - Swelling [Recovering/Resolving]
  - Erythema [Recovering/Resolving]
  - Skin fissures [Recovering/Resolving]
  - Eosinophil count increased [Recovering/Resolving]
  - Skin exfoliation [Recovering/Resolving]
  - Rash erythematous [Recovering/Resolving]
  - Ocular icterus [Recovering/Resolving]
  - Lymphadenopathy [Unknown]
